FAERS Safety Report 19013238 (Version 2)
Quarter: 2022Q1

REPORT INFORMATION
  Report Type: Report from Study
  Country: US (occurrence: US)
  Receive Date: 20210315
  Receipt Date: 20220110
  Transmission Date: 20220423
  Serious: Yes (Hospitalization)
  Sender: FDA-Public Use
  Company Number: US-PFIZER INC-2021260499

PATIENT
  Age: 16 Year
  Sex: Male
  Weight: 91.9 kg

DRUGS (12)
  1. VINCRISTINE SULFATE [Suspect]
     Active Substance: VINCRISTINE SULFATE
     Indication: Acute lymphocytic leukaemia
     Dosage: 1.5 MG, D1, 29, 57
     Route: 042
     Dates: start: 20210104
  2. VINCRISTINE SULFATE [Suspect]
     Active Substance: VINCRISTINE SULFATE
     Dosage: 2 MG, D1, 29, 57
     Route: 042
  3. METHOTREXATE SODIUM [Suspect]
     Active Substance: METHOTREXATE SODIUM
     Indication: Acute lymphocytic leukaemia
     Dosage: 15 MG, D1, 29
     Route: 037
     Dates: start: 20210104
  4. RUXOLITINIB [Suspect]
     Active Substance: RUXOLITINIB
     Indication: Acute lymphocytic leukaemia
     Dosage: TABLET, 100 MG, BID, D1-14, 29-42, 57-70
     Route: 048
     Dates: start: 20210104
  5. RUXOLITINIB [Suspect]
     Active Substance: RUXOLITINIB
     Dosage: TABLET, 100 MG, QD, D1-14, 29-42, 57-70
     Route: 048
  6. PREDNISONE [Suspect]
     Active Substance: PREDNISONE
     Indication: Acute lymphocytic leukaemia
     Dosage: TABLET, 40 MG, BID
     Route: 048
     Dates: start: 20210104
  7. MERCAPTOPURINE [Suspect]
     Active Substance: MERCAPTOPURINE
     Indication: Acute lymphocytic leukaemia
     Dosage: TABLET, 75 MG/M2, D1-84
     Route: 048
     Dates: start: 20210104
  8. MERCAPTOPURINE [Suspect]
     Active Substance: MERCAPTOPURINE
     Dosage: TABLET, 37.5 MG/M2, D1-84
     Route: 048
     Dates: end: 20210119
  9. MERCAPTOPURINE [Suspect]
     Active Substance: MERCAPTOPURINE
     Dosage: TABLET, 37.5 MG/M2, D1-84
     Route: 048
  10. METHOTREXATE [Suspect]
     Active Substance: METHOTREXATE
     Indication: Acute lymphocytic leukaemia
     Dosage: TABLET, 40 MG, D8,15, 22, 29, 36
     Route: 048
     Dates: start: 20210112
  11. METHOTREXATE [Suspect]
     Active Substance: METHOTREXATE
     Dosage: TABLET, 20 MG, D8,15, 22, 29, 36
     Route: 048
     Dates: end: 20210119
  12. METHOTREXATE [Suspect]
     Active Substance: METHOTREXATE
     Dosage: TABLET, 20 MG, D8,15, 22, 29, 36
     Route: 048

REACTIONS (2)
  - Epistaxis [Recovered/Resolved]
  - Anaemia [Recovered/Resolved]

NARRATIVE: CASE EVENT DATE: 20210122
